FAERS Safety Report 8109289 (Version 3)
Quarter: 2013Q4

REPORT INFORMATION
  Report Type: Spontaneous
  Country: US (occurrence: US)
  Receive Date: 20110826
  Receipt Date: 20131202
  Transmission Date: 20140711
  Serious: Yes (Hospitalization, Other)
  Sender: FDA-Public Use
  Company Number: US-BAYER-2011-075309

PATIENT
  Age: 33 Year
  Sex: Female
  Weight: 90.7 kg

DRUGS (24)
  1. YAZ [Suspect]
     Indication: CONTRACEPTION
     Dosage: UNK
     Route: 048
     Dates: start: 200803, end: 200912
  2. LEVAQUIN [Concomitant]
     Dosage: 250 MG, UNK
     Dates: start: 20090804
  3. ACYCLOVIR [ACICLOVIR] [Concomitant]
     Dosage: 400 MG, UNK
     Dates: start: 20090825
  4. PREDNISONE [Concomitant]
     Dosage: 20 MG, UNK
     Dates: start: 20090907
  5. DOXYCYCLINE [Concomitant]
     Dosage: 100 MG, UNK
     Dates: start: 20090914
  6. SUCRALFATE [Concomitant]
     Dosage: 1 G, UNK
     Dates: start: 20090916
  7. FLUCONAZOLE [Concomitant]
     Dosage: 150 MG, UNK
     Dates: start: 20090923
  8. POLYETHYLENE GLYCOL [Concomitant]
     Dosage: 3350
     Dates: start: 20090926
  9. BISACODYL [Concomitant]
     Dosage: 5 MG, UNK
     Dates: start: 20090926
  10. RANITIDINE [Concomitant]
     Dosage: 150 MG, UNK
     Dates: start: 20071029, end: 20090927
  11. HYDROXYZINE [Concomitant]
     Dosage: 25 MG, UNK
     Dates: start: 20090930
  12. HYDROCODONE W/ACETAMINOPHEN [Concomitant]
     Dosage: 5-500
     Dates: start: 20091006
  13. METOCLOPRAMIDE [Concomitant]
     Dosage: 5 MG, UNK
     Dates: start: 20081027, end: 20091010
  14. SPIRIVA [Concomitant]
     Dosage: 18 ?G, UNK
     Dates: start: 20081020, end: 20091010
  15. LEVEMIR [Concomitant]
     Dosage: 100 UNITS
     Dates: start: 20080123, end: 20091022
  16. ALBUTEROL [Concomitant]
     Dosage: 0.083%
     Route: 045
     Dates: start: 20090907, end: 20091030
  17. VALTREX [Concomitant]
     Dosage: 500 MG, UNK
     Dates: start: 20090826, end: 20091119
  18. CARVEDILOL [Concomitant]
     Dosage: 6.25 MG, UNK
     Dates: start: 20080507, end: 20091216
  19. SEREVENT DISKUS [Concomitant]
     Dosage: 50 ?G, UNK
     Dates: start: 20090826, end: 20100118
  20. HUMALOG [Concomitant]
     Dosage: 100 UNITS/ML
     Dates: start: 20090908, end: 20100311
  21. SIMVASTATIN [Concomitant]
     Dosage: 40 MG, UNK
     Dates: start: 20090213, end: 20100411
  22. EFFEXOR XR [Concomitant]
     Dosage: 75 MG, UNK
     Dates: start: 20090316, end: 20100411
  23. CLONAZEPAM [Concomitant]
     Dosage: 0.5 MG, UNK
     Dates: start: 20050208, end: 20100414
  24. CYCLOBENZAPRINE [Concomitant]
     Dosage: 10 MG, UNK
     Dates: start: 20031020, end: 20100417

REACTIONS (3)
  - Gallbladder injury [None]
  - Biliary dyskinesia [None]
  - Cholecystitis chronic [None]
